FAERS Safety Report 8969953 (Version 1)
Quarter: 2012Q4

REPORT INFORMATION
  Report Type: 
  Country: NZ (occurrence: NZ)
  Receive Date: 20121217
  Receipt Date: 20121217
  Transmission Date: 20130627
  Serious: Yes (Hospitalization)
  Sender: FDA-Public Use
  Company Number: NZ-B.I. PHARMACEUTICALS,INC./RIDGEFIELD-2012-AU-01984AU

PATIENT
  Age: 82 Year
  Sex: Female

DRUGS (3)
  1. PRADAXA [Suspect]
     Indication: ATRIAL FIBRILLATION
     Dosage: 220 mg
     Dates: start: 20110915, end: 201204
  2. WARFARIN [Suspect]
     Indication: ATRIAL FIBRILLATION
     Dates: end: 201109
  3. WARFARIN [Suspect]
     Dates: start: 201205

REACTIONS (3)
  - Arthritis bacterial [Unknown]
  - Oesophagitis [Recovered/Resolved]
  - Epigastric discomfort [Recovered/Resolved]
